FAERS Safety Report 7635600-9 (Version None)
Quarter: 2011Q3

REPORT INFORMATION
  Report Type: 
  Country: None (occurrence: None)
  Receive Date: 20110726
  Receipt Date: 20110713
  Transmission Date: 20111222
  Serious: Yes (Hospitalization)
  Sender: FDA-Public Use
  Company Number: PHHY2011US65560

PATIENT
  Sex: Male

DRUGS (5)
  1. FOLIC ACID [Concomitant]
     Indication: THALASSAEMIA
     Dosage: UNK UKN, UNK
     Route: 048
  2. PENICILLIN NOS [Concomitant]
     Indication: THALASSAEMIA
     Dosage: 250 MG, BID
     Route: 048
  3. SEPTRA [Concomitant]
     Dosage: UNK UKN, UNK
  4. EXJADE [Suspect]
     Indication: IRON OVERLOAD
     Dosage: 500 MG, DAILY
     Route: 048
     Dates: start: 20080328
  5. URSODIOL [Concomitant]
     Indication: CHOLELITHIASIS
     Dosage: 300 MG, UNK
     Route: 048

REACTIONS (1)
  - SEPSIS [None]
